FAERS Safety Report 17843273 (Version 2)
Quarter: 2020Q2

REPORT INFORMATION
  Report Type: Spontaneous
  Country: CA (occurrence: CA)
  Receive Date: 20200530
  Receipt Date: 20200623
  Transmission Date: 20200714
  Serious: Yes (Life-Threatening)
  Sender: FDA-Public Use
  Company Number: CA-UNITED THERAPEUTICS-UNT-2020-007960

PATIENT
  Sex: Female

DRUGS (1)
  1. REMODULIN [Suspect]
     Active Substance: TREPROSTINIL
     Indication: PULMONARY ARTERIAL HYPERTENSION
     Dosage: INFUSION RATE 0.044 ML/HR, CONTINUING
     Route: 058

REACTIONS (3)
  - Complication associated with device [Unknown]
  - Infusion site extravasation [Unknown]
  - Oxygen saturation decreased [Unknown]
